FAERS Safety Report 16784581 (Version 1)
Quarter: 2019Q3

REPORT INFORMATION
  Report Type: Spontaneous
  Country: IT (occurrence: IT)
  Receive Date: 20190909
  Receipt Date: 20190909
  Transmission Date: 20191005
  Serious: Yes (Other)
  Sender: FDA-Public Use
  Company Number: IT-TEVA-2019-IT-1103421

PATIENT
  Age: 28 Year
  Sex: Male

DRUGS (6)
  1. FLUOROURACILE [Suspect]
     Active Substance: FLUOROURACIL
     Indication: ADENOCARCINOMA OF COLON
     Dosage: 5000MG/CYCLICAL
     Route: 041
     Dates: start: 20190814
  2. SOLDESAM [Concomitant]
     Active Substance: DEXAMETHASONE
     Indication: ANAPHYLAXIS PROPHYLAXIS
     Dosage: 8MG
     Route: 042
     Dates: start: 20190814, end: 20190814
  3. ONDANSETRON HYDROCHLORIDE. [Concomitant]
     Active Substance: ONDANSETRON HYDROCHLORIDE
     Indication: PROPHYLAXIS OF NAUSEA AND VOMITING
     Dosage: 8MG
     Route: 042
     Dates: start: 20190814, end: 20190814
  4. TRIMETON 10 MG/1 ML SOLUZIONE INIETTABILE [Concomitant]
     Indication: ANTIALLERGIC THERAPY
     Dosage: 10MG
     Route: 042
     Dates: start: 20190814, end: 20190814
  5. IRINOTECAN [Suspect]
     Active Substance: IRINOTECAN
     Indication: ADENOCARCINOMA OF COLON
     Dosage: 260MG/CYCLICAL
     Route: 042
     Dates: start: 20190814, end: 20190814
  6. CALCIUM LEVOFOLINATE [Suspect]
     Active Substance: LEVOLEUCOVORIN CALCIUM
     Indication: ADENOCARCINOMA OF COLON
     Dosage: 390MG/CYCLICAL
     Route: 042
     Dates: start: 20190814, end: 20190814

REACTIONS (2)
  - Abdominal pain upper [Recovering/Resolving]
  - Vomiting [Recovering/Resolving]

NARRATIVE: CASE EVENT DATE: 20190815
